FAERS Safety Report 23976697 (Version 2)
Quarter: 2024Q3

REPORT INFORMATION
  Report Type: Spontaneous
  Country: AU (occurrence: AU)
  Receive Date: 20240614
  Receipt Date: 20240710
  Transmission Date: 20241017
  Serious: Yes (Other)
  Sender: ABBVIE
  Company Number: AU-ABBVIE-5799028

PATIENT
  Age: 89 Year
  Sex: Male

DRUGS (3)
  1. OZURDEX [Suspect]
     Active Substance: DEXAMETHASONE
     Indication: Product used for unknown indication
     Dosage: TIME INTERVAL: AS NECESSARY: FREQUENCY TEXT: EVERY 14-15 WEEKS
     Route: 050
  2. OZURDEX [Suspect]
     Active Substance: DEXAMETHASONE
     Dosage: TIME INTERVAL: AS NECESSARY: FREQUENCY TEXT: EVERY 14-15 WEEKS
     Route: 050
     Dates: start: 20170228, end: 20170228
  3. OZURDEX [Suspect]
     Active Substance: DEXAMETHASONE
     Dosage: TIME INTERVAL: AS NECESSARY: FREQUENCY TEXT: EVERY 14-15 WEEKS
     Route: 050
     Dates: start: 20240607, end: 20240607

REACTIONS (2)
  - Eye haemorrhage [Recovering/Resolving]
  - Visual acuity reduced [Unknown]

NARRATIVE: CASE EVENT DATE: 20240607
